FAERS Safety Report 7920717-1 (Version None)
Quarter: 2011Q4

REPORT INFORMATION
  Report Type: 
  Country: None (occurrence: None)
  Receive Date: 20111117
  Receipt Date: 20111104
  Transmission Date: 20120403
  Serious: Yes (Other)
  Sender: FDA-Public Use
  Company Number: US-BAYER-201033438NA

PATIENT
  Age: 29 Year
  Sex: Female

DRUGS (1)
  1. YASMIN [Suspect]
     Indication: ORAL CONTRACEPTION
     Dosage: UNK UNK, UNK
     Route: 048
     Dates: start: 20090518, end: 20090606

REACTIONS (5)
  - CEREBROVASCULAR ACCIDENT [None]
  - ASTHENIA [None]
  - VISUAL IMPAIRMENT [None]
  - CONFUSIONAL STATE [None]
  - MEMORY IMPAIRMENT [None]
